FAERS Safety Report 6314721-7 (Version None)
Quarter: 2009Q3

REPORT INFORMATION
  Report Type: 
  Country: None (occurrence: None)
  Receive Date: 20090819
  Receipt Date: 20090807
  Transmission Date: 20100115
  Serious: Yes (Death)
  Sender: FDA-Public Use
  Company Number: CH-JNJFOC-20090801000

PATIENT
  Age: 35 Year
  Sex: Male

DRUGS (4)
  1. TRAMAL [Suspect]
     Indication: DRUG USE FOR UNKNOWN INDICATION
     Route: 048
  2. TRITTICO [Interacting]
     Indication: DRUG USE FOR UNKNOWN INDICATION
     Route: 048
  3. DALMADORM [Interacting]
     Indication: SLEEP DISORDER
     Route: 048
  4. XANAX [Interacting]
     Indication: SLEEP DISORDER
     Route: 065

REACTIONS (4)
  - CARDIO-RESPIRATORY ARREST [None]
  - DRUG INTERACTION [None]
  - LOSS OF CONSCIOUSNESS [None]
  - REGURGITATION [None]
